FAERS Safety Report 14090592 (Version 1)
Quarter: 2017Q4

REPORT INFORMATION
  Report Type: Other
  Country: AU (occurrence: AU)
  Receive Date: 20171015
  Receipt Date: 20171015
  Transmission Date: 20180321
  Serious: Yes (Death)
  Sender: FDA-Public Use
  Company Number: AU-ALSI-201700350

PATIENT
  Age: 72 Year
  Sex: Male

DRUGS (1)
  1. OXYGEN 100% [Suspect]
     Active Substance: OXYGEN
     Indication: PRODUCT USED FOR UNKNOWN INDICATION
     Route: 043
     Dates: start: 20160919, end: 20160919

REACTIONS (3)
  - Urinary bladder rupture [Fatal]
  - Air embolism [Fatal]
  - Incorrect route of drug administration [Fatal]
